FAERS Safety Report 15007506 (Version 1)
Quarter: 2018Q2

REPORT INFORMATION
  Report Type: Spontaneous
  Country: GB (occurrence: GB)
  Receive Date: 20180613
  Receipt Date: 20180613
  Transmission Date: 20180711
  Serious: Yes (Other)
  Sender: FDA-Public Use
  Company Number: GB-TEVA-2018-GB-905408

PATIENT
  Age: 39 Year
  Sex: Female
  Weight: 79 kg

DRUGS (2)
  1. DEPO-PROVERA [Concomitant]
     Active Substance: MEDROXYPROGESTERONE ACETATE
     Route: 065
     Dates: start: 20180306, end: 20180307
  2. SUMATRIPTAN. [Suspect]
     Active Substance: SUMATRIPTAN
     Route: 065
     Dates: start: 20180412

REACTIONS (1)
  - Rash [Recovering/Resolving]

NARRATIVE: CASE EVENT DATE: 20180412
